FAERS Safety Report 6680861-6 (Version None)
Quarter: 2010Q2

REPORT INFORMATION
  Report Type: 
  Country: None (occurrence: None)
  Receive Date: 20100413
  Receipt Date: 20100413
  Transmission Date: 20101027
  Serious: Yes (Other)
  Sender: FDA-Public Use
  Company Number: None

PATIENT
  Age: 52 Year
  Sex: Female
  Weight: 56.6996 kg

DRUGS (3)
  1. PROMETRIUM [Suspect]
     Indication: MENOPAUSE
     Dosage: 1 CAPSULE ONCE/DAY PO
     Route: 048
     Dates: start: 20080115, end: 20100308
  2. ESTROGEN PATCH [Concomitant]
  3. VIVEL DOT [Concomitant]

REACTIONS (8)
  - ABASIA [None]
  - GAIT DISTURBANCE [None]
  - MOVEMENT DISORDER [None]
  - MUSCLE DISORDER [None]
  - MUSCLE INJURY [None]
  - MUSCLE SPASMS [None]
  - PAIN IN EXTREMITY [None]
  - WEIGHT BEARING DIFFICULTY [None]
